FAERS Safety Report 11543446 (Version 1)
Quarter: 2015Q3

REPORT INFORMATION
  Report Type: Spontaneous
  Country: BR (occurrence: BR)
  Receive Date: 20150923
  Receipt Date: 20150923
  Transmission Date: 20151125
  Serious: Yes (Other)
  Sender: FDA-Public Use
  Company Number: BR-ASTRAZENECA-2015SE91367

PATIENT
  Age: 761 Month
  Sex: Male
  Weight: 62 kg

DRUGS (3)
  1. GLIFAGE XR [Suspect]
     Active Substance: METFORMIN HYDROCHLORIDE
     Indication: DIABETES MELLITUS
     Dosage: EVERY DAY, NON-AZ PRODUCT
     Route: 048
     Dates: start: 2012
  2. CRESTOR [Suspect]
     Active Substance: ROSUVASTATIN CALCIUM
     Indication: BLOOD CHLORIDE ABNORMAL
     Dosage: EVERY DAY
     Route: 048
  3. ASPIRIN. [Concomitant]
     Active Substance: ASPIRIN
     Indication: BLOOD CHLORIDE ABNORMAL
     Dosage: EVERY DAY
     Route: 048

REACTIONS (2)
  - Blood cholesterol increased [Unknown]
  - Vascular occlusion [Unknown]

NARRATIVE: CASE EVENT DATE: 201502
